FAERS Safety Report 24894840 (Version 1)
Quarter: 2025Q1

REPORT INFORMATION
  Report Type: Spontaneous
  Country: US (occurrence: None)
  Receive Date: 20250127
  Receipt Date: 20250127
  Transmission Date: 20250408
  Serious: Yes (Disabling, Other)
  Sender: FDA-CTU
  Company Number: None

PATIENT
  Age: 74 Year
  Sex: Female
  Weight: 71.55 kg

DRUGS (10)
  1. ZOLEDRONIC ACID [Suspect]
     Active Substance: ZOLEDRONIC ACID
     Indication: Bone density decreased
     Route: 042
  2. ZOLEDRONIC ACID [Suspect]
     Active Substance: ZOLEDRONIC ACID
     Indication: Osteopenia
  3. LEVOTHYROXINE [Concomitant]
     Active Substance: LEVOTHYROXINE
  4. PANTOPRAZOLE SODIUM [Concomitant]
     Active Substance: PANTOPRAZOLE SODIUM
  5. BUPROPION [Concomitant]
     Active Substance: BUPROPION
  6. ESTRADIOL VAGINAL [Concomitant]
     Active Substance: ESTRADIOL
  7. CELECOXIB [Concomitant]
     Active Substance: CELECOXIB
  8. VITAMINS [Concomitant]
     Active Substance: VITAMINS
  9. VitD [Concomitant]
  10. VITAMIN B12 [Concomitant]
     Active Substance: CYANOCOBALAMIN

REACTIONS (12)
  - Infusion related reaction [None]
  - Chills [None]
  - Pain [None]
  - Arthralgia [None]
  - Inflammation [None]
  - Weight bearing difficulty [None]
  - Dysstasia [None]
  - Sitting disability [None]
  - Pyrexia [None]
  - Blood calcium decreased [None]
  - Blood potassium decreased [None]
  - Serum ferritin increased [None]

NARRATIVE: CASE EVENT DATE: 20250109
